FAERS Safety Report 24983250 (Version 4)
Quarter: 2025Q4

REPORT INFORMATION
  Report Type: Report from Study
  Country: EU (occurrence: EU)
  Receive Date: 20250218
  Receipt Date: 20251022
  Transmission Date: 20260117
  Serious: Yes (Hospitalization)
  Sender: ABBVIE
  Company Number: EU-ABBVIE-6134704

PATIENT
  Age: 77 Year
  Sex: Male

DRUGS (4)
  1. CARBIDOPA [Suspect]
     Active Substance: CARBIDOPA
     Indication: Parkinson^s disease
     Dosage: MD 10.0 ML; CRD 3.1 ML/H; ED1.8 ML
     Route: 050
     Dates: start: 20210125
  2. CARBIDOPA [Suspect]
     Active Substance: CARBIDOPA
  3. MELATONIN [Concomitant]
     Active Substance: MELATONIN
     Indication: Product used for unknown indication
     Dosage: AT NIGHT
  4. BENSERAZIDE HYDROCHLORIDE\LEVODOPA [Concomitant]
     Active Substance: BENSERAZIDE HYDROCHLORIDE\LEVODOPA
     Indication: Product used for unknown indication
     Dosage: AT NIGHT

REACTIONS (11)
  - Mental disorder [Recovering/Resolving]
  - Mobility decreased [Not Recovered/Not Resolved]
  - Testicular operation [Unknown]
  - Pneumonia [Unknown]
  - Intentional medical device removal by patient [Unknown]
  - Aggression [Recovering/Resolving]
  - Device dislocation [Unknown]
  - Enteral nutrition [Unknown]
  - Dysphagia [Not Recovered/Not Resolved]
  - Incorrect route of product administration [Unknown]
  - Enteral nutrition [Unknown]

NARRATIVE: CASE EVENT DATE: 20250101
